FAERS Safety Report 9739564 (Version 1)
Quarter: 2013Q4

REPORT INFORMATION
  Report Type: Spontaneous
  Country: JP (occurrence: JP)
  Receive Date: 20131209
  Receipt Date: 20131209
  Transmission Date: 20140711
  Serious: Yes (Hospitalization)
  Sender: FDA-Public Use
  Company Number: JP-PFIZER INC-2013346894

PATIENT
  Age: 27 Year
  Sex: Female

DRUGS (2)
  1. METHYLPREDNISOLONE SODIUM SUCCINATE [Suspect]
     Indication: HEPATITIS
     Dosage: 1 G, DAILY
  2. METHYLPREDNISOLONE SODIUM SUCCINATE [Suspect]
     Indication: GENERALISED ERYTHEMA
     Dosage: 500 MG, DAILY

REACTIONS (1)
  - Hepatitis fulminant [Unknown]
